FAERS Safety Report 9364473 (Version 1)
Quarter: 2013Q3

REPORT INFORMATION
  Report Type: Spontaneous
  Country: US (occurrence: None)
  Receive Date: 20130619
  Receipt Date: 20130619
  Transmission Date: 20140515
  Serious: Yes (Hospitalization, Other)
  Sender: FDA-Public Use
  Company Number: SYM-2013-04715

PATIENT
  Age: 57 Year
  Sex: Female

DRUGS (5)
  1. FLAGYL [Suspect]
     Indication: ENTEROCOCCAL INFECTION
     Route: 048
     Dates: start: 20130215, end: 20130228
  2. TAZOCILLINE [Suspect]
     Indication: ENTEROCOCCAL INFECTION
     Route: 042
     Dates: start: 20130301, end: 20130311
  3. TRIFLUCAN [Suspect]
     Route: 042
  4. ZOLPIDEM [Concomitant]
  5. CEFOTAXIME SODIUM [Suspect]
     Indication: ENTEROCOCCAL INFECTION
     Dates: start: 20130215, end: 20130228

REACTIONS (2)
  - Neutropenia [None]
  - Pyrexia [None]
